FAERS Safety Report 13671121 (Version 2)
Quarter: 2017Q3

REPORT INFORMATION
  Report Type: Spontaneous
  Country: US (occurrence: US)
  Receive Date: 20170620
  Receipt Date: 20170816
  Transmission Date: 20171127
  Serious: No
  Sender: FDA-Public Use
  Company Number: US-PFIZER INC-2017267061

PATIENT
  Age: 62 Year
  Sex: Female

DRUGS (2)
  1. LATANOPROST. [Suspect]
     Active Substance: LATANOPROST
     Indication: OPEN ANGLE GLAUCOMA
  2. LATANOPROST. [Suspect]
     Active Substance: LATANOPROST
     Indication: GLAUCOMA
     Dosage: 1 GTT EACH EYE , 1X/DAY AT NIGHT,
     Route: 047
     Dates: start: 20160517

REACTIONS (2)
  - Intraocular pressure fluctuation [Recovered/Resolved]
  - Drug effect incomplete [Recovered/Resolved]
